FAERS Safety Report 8047316-8 (Version None)
Quarter: 2012Q1

REPORT INFORMATION
  Report Type: 
  Country: None (occurrence: None)
  Receive Date: 20120116
  Receipt Date: 20120109
  Transmission Date: 20120608
  Serious: Yes (Hospitalization)
  Sender: FDA-Public Use
  Company Number: US-AMGEN-USASP2011066023

PATIENT
  Age: 73 Year
  Sex: Male
  Weight: 80.272 kg

DRUGS (13)
  1. PREDNISONE [Concomitant]
     Dosage: 5 MG, QD
     Route: 048
  2. LIPITOR [Concomitant]
     Dosage: 10 MG, QD
     Route: 048
  3. TAXOTERE [Concomitant]
  4. NEXIUM [Concomitant]
     Dosage: 40 MG, BID
     Route: 048
  5. TRICOR [Concomitant]
     Dosage: 145 MG, QD
     Route: 048
  6. FENTANYL [Concomitant]
     Dosage: 25 MUG, UNK
     Dates: start: 20111108
  7. LASIX [Concomitant]
     Dosage: 20 MG, QD
  8. VITAMIN D                          /00318501/ [Concomitant]
     Dosage: 5000 IU, QWK
  9. FENTANYL [Concomitant]
     Dosage: 12.5 MUG, UNK
  10. NORCO [Concomitant]
     Dosage: UNK
  11. TEMAZEPAM [Concomitant]
     Dosage: 7.5 MG, QHS
  12. LIDODERM [Concomitant]
     Dosage: 5 %, UNK
  13. XGEVA [Suspect]
     Indication: METASTASES TO BONE
     Dosage: 120 MG, UNK
     Route: 058
     Dates: start: 20111020, end: 20111117

REACTIONS (3)
  - HYPOCALCAEMIA [None]
  - BACK PAIN [None]
  - FALL [None]
